FAERS Safety Report 12603253 (Version 1)
Quarter: 2016Q3

REPORT INFORMATION
  Report Type: Report from Study
  Country: US (occurrence: US)
  Receive Date: 20160728
  Receipt Date: 20160728
  Transmission Date: 20161109
  Serious: Yes (Other)
  Sender: FDA-Public Use
  Company Number: US-ACTELION-A-US2016-139797

PATIENT
  Age: 83 Year
  Sex: Female

DRUGS (2)
  1. NIFEDIPINE XL [Concomitant]
     Active Substance: NIFEDIPINE
  2. OPSUMIT [Suspect]
     Active Substance: MACITENTAN
     Indication: PULMONARY ARTERIAL HYPERTENSION
     Dosage: 10 MG, QD
     Route: 048
     Dates: start: 20150427

REACTIONS (4)
  - Cardiac failure [Unknown]
  - Malaise [Unknown]
  - Neoplasm malignant [Unknown]
  - Vein collapse [Unknown]

NARRATIVE: CASE EVENT DATE: 201604
